FAERS Safety Report 19138525 (Version 7)
Quarter: 2021Q3

REPORT INFORMATION
  Report Type: Spontaneous
  Country: US (occurrence: US)
  Receive Date: 20210415
  Receipt Date: 20210811
  Transmission Date: 20211014
  Serious: Yes (Hospitalization, Other)
  Sender: FDA-Public Use
  Company Number: US-STRONGBRIDGE BIOPHARMA-2021-STR-000121

PATIENT
  Age: 49 Year
  Sex: Female

DRUGS (4)
  1. KEVEYIS [Suspect]
     Active Substance: DICHLORPHENAMIDE
     Dosage: 100 MG, BID
     Route: 048
     Dates: start: 20201216
  2. KEVEYIS [Suspect]
     Active Substance: DICHLORPHENAMIDE
     Dosage: 50 MG, BID
     Route: 048
  3. KEVEYIS [Suspect]
     Active Substance: DICHLORPHENAMIDE
     Dosage: 50 MG, QD
     Route: 048
  4. KEVEYIS [Suspect]
     Active Substance: DICHLORPHENAMIDE
     Indication: FAMILIAL PERIODIC PARALYSIS
     Dosage: 100 MG, BID
     Route: 048

REACTIONS (14)
  - Peripheral swelling [Unknown]
  - Chest discomfort [Recovered/Resolved]
  - Intentional underdose [Unknown]
  - Hydrocephalus [Unknown]
  - Cerebrovascular accident [Unknown]
  - Cardiac disorder [Unknown]
  - Coagulopathy [Unknown]
  - Blood potassium decreased [Recovered/Resolved]
  - Blood potassium decreased [Unknown]
  - Seizure [Unknown]
  - Mental disorder [Unknown]
  - General physical health deterioration [Unknown]
  - Stress [Unknown]
  - Angiopathy [Unknown]

NARRATIVE: CASE EVENT DATE: 20210507
